FAERS Safety Report 12319123 (Version 2)
Quarter: 2016Q2

REPORT INFORMATION
  Report Type: Spontaneous
  Country: ES (occurrence: ES)
  Receive Date: 20160429
  Receipt Date: 20160502
  Transmission Date: 20160815
  Serious: Yes (Other)
  Sender: FDA-Public Use
  Company Number: ES-TEVA-656028ISR

PATIENT
  Age: 31 Year
  Sex: Female

DRUGS (12)
  1. VALPROIC ACID. [Suspect]
     Active Substance: VALPROIC ACID
     Dosage: 500 MILLIGRAM DAILY;
  2. CAPECITABINE. [Suspect]
     Active Substance: CAPECITABINE
  3. CAPECITABINE. [Suspect]
     Active Substance: CAPECITABINE
     Dosage: ON DAYS 1-14 OF EACH CYCLE
  4. LAPATINIB [Suspect]
     Active Substance: LAPATINIB
     Dosage: 1250 MILLIGRAM DAILY;
  5. VALPROIC ACID. [Suspect]
     Active Substance: VALPROIC ACID
     Indication: SEIZURE
     Dates: start: 201302
  6. TRASTUZUMAB [Concomitant]
     Active Substance: TRASTUZUMAB
     Indication: METASTASES TO BONE
     Dates: start: 201110
  7. VALPROIC ACID. [Suspect]
     Active Substance: VALPROIC ACID
  8. DEXAMETHASONE. [Suspect]
     Active Substance: DEXAMETHASONE
     Indication: PERITUMOURAL OEDEMA
     Dates: start: 201302
  9. LAPATINIB [Suspect]
     Active Substance: LAPATINIB
     Dosage: 1000 MILLIGRAM DAILY;
  10. TRASTUZUMAB [Concomitant]
     Active Substance: TRASTUZUMAB
     Indication: METASTASES TO LIVER
     Dates: start: 201110
  11. LAPATINIB [Suspect]
     Active Substance: LAPATINIB
     Dosage: 750 MILLIGRAM DAILY;
  12. LETROZOLE. [Concomitant]
     Active Substance: LETROZOLE

REACTIONS (12)
  - Hepatotoxicity [Recovering/Resolving]
  - Asthenia [Recovering/Resolving]
  - Diarrhoea [Recovering/Resolving]
  - Mucosal inflammation [Recovering/Resolving]
  - Nausea [Recovering/Resolving]
  - Drug tolerance decreased [Recovering/Resolving]
  - Tremor [Recovering/Resolving]
  - Gastrointestinal toxicity [Recovering/Resolving]
  - Oropharyngeal candidiasis [Recovering/Resolving]
  - Vomiting [Recovering/Resolving]
  - Leukocytosis [Recovering/Resolving]
  - Drug administration error [Recovering/Resolving]
